FAERS Safety Report 9809056 (Version 1)
Quarter: 2014Q1

REPORT INFORMATION
  Report Type: Spontaneous
  Country: US (occurrence: US)
  Receive Date: 20140110
  Receipt Date: 20140110
  Transmission Date: 20141002
  Serious: No
  Sender: FDA-Public Use
  Company Number: US-MALLINCKRODT-T201300828

PATIENT
  Age: 37 Year
  Sex: Female

DRUGS (3)
  1. OPTIRAY [Suspect]
     Dosage: 100 ML, SINGLE
     Route: 042
     Dates: start: 20130208, end: 20130208
  2. ALLEGRA [Concomitant]
     Dosage: UNK
  3. ANXIOLYTICS [Concomitant]
     Indication: ANXIETY
     Dosage: PRN

REACTIONS (2)
  - Cough [Recovered/Resolved]
  - Throat irritation [Recovered/Resolved]
